FAERS Safety Report 5346932-1 (Version None)
Quarter: 2007Q2

REPORT INFORMATION
  Report Type: 
  Country: None (occurrence: None)
  Receive Date: 20070430
  Receipt Date: 20070221
  Transmission Date: 20071010
  Serious: No
  Sender: FDA-Public Use
  Company Number: 261039

PATIENT
  Age: 71 Year
  Sex: Male

DRUGS (1)
  1. LEVEMIR FLEXPEN         INSULIN DETEMIR) [Suspect]
     Indication: DIABETES MELLITUS
     Dosage: 10 U, QD
     Dates: start: 20060101

REACTIONS (3)
  - BLOOD GLUCOSE INCREASED [None]
  - DIZZINESS [None]
  - VOMITING [None]
